FAERS Safety Report 8481414-X (Version None)
Quarter: 2012Q2

REPORT INFORMATION
  Report Type: 
  Country: None (occurrence: None)
  Receive Date: 20120626
  Receipt Date: 20120626
  Transmission Date: 20120825
  Serious: Yes (Hospitalization)
  Sender: FDA-Public Use
  Company Number: None

PATIENT
  Age: 68 Year
  Sex: Male

DRUGS (10)
  1. RIBAVIRIN [Suspect]
     Indication: HEPATITIS C
     Dosage: 600MG TWICE A DAY BY MOUTH
     Route: 048
     Dates: start: 20120407, end: 20120501
  2. LISINOPRIL [Concomitant]
  3. BRIMONIDINE 0.2% [Concomitant]
  4. FUROSEMIDE [Concomitant]
  5. PROCRIT [Concomitant]
  6. PEGASYS [Concomitant]
  7. NEVANAC [Concomitant]
  8. . [Concomitant]
  9. PREDNISONE [Concomitant]
  10. KETOROLAC 0.5% [Concomitant]

REACTIONS (3)
  - HYPERHIDROSIS [None]
  - DIZZINESS [None]
  - ANXIETY [None]
